FAERS Safety Report 5604169-2 (Version None)
Quarter: 2008Q1

REPORT INFORMATION
  Report Type: 
  Country: None (occurrence: None)
  Receive Date: 20080123
  Receipt Date: 20080114
  Transmission Date: 20080703
  Serious: Yes (Death)
  Sender: FDA-Public Use
  Company Number: B0503182A

PATIENT
  Age: 52 Year
  Sex: Female

DRUGS (7)
  1. DIAZEPAM [Suspect]
     Dosage: ORAL
     Route: 048
  2. AMITRIPTLINE HCL [Suspect]
     Dosage: ORAL
     Route: 048
  3. VERAPAMIL [Suspect]
     Dosage: ORAL
     Route: 048
  4. GABAPENTIN [Suspect]
     Dosage: ORAL
     Route: 048
  5. COMPAZINE [Suspect]
     Dosage: ORAL
     Route: 048
  6. BACLOFEN [Suspect]
     Dosage: ORAL
     Route: 048
  7. METHADONE HYDROCHLORIDE [Suspect]
     Dosage: ORAL
     Route: 048

REACTIONS (2)
  - CARDIO-RESPIRATORY ARREST [None]
  - COMPLETED SUICIDE [None]
